FAERS Safety Report 9645359 (Version 1)
Quarter: 2013Q4

REPORT INFORMATION
  Report Type: Spontaneous
  Country: FR (occurrence: FR)
  Receive Date: 20131025
  Receipt Date: 20131025
  Transmission Date: 20140711
  Serious: Yes (Other)
  Sender: FDA-Public Use
  Company Number: FR-ASTRAZENECA-2013SE76893

PATIENT
  Age: 19 Year
  Sex: Male

DRUGS (10)
  1. PROPOFOL LIPURO [Suspect]
     Route: 042
     Dates: start: 20130913, end: 20130928
  2. BRICANYL [Suspect]
     Route: 055
     Dates: start: 201309, end: 20130926
  3. THIOPENTAL ROTEXMEDICA [Suspect]
     Route: 042
     Dates: start: 201309, end: 201309
  4. DIPEPTIVEN [Suspect]
     Route: 065
     Dates: start: 201309, end: 20130926
  5. DUPHALAC [Concomitant]
  6. INSULINE [Concomitant]
  7. MIDAZOLAM [Concomitant]
  8. NORADRENALINE [Concomitant]
  9. SUFENTANIL [Concomitant]
  10. PARACETAMOL [Concomitant]

REACTIONS (1)
  - Agranulocytosis [Recovered/Resolved]
